FAERS Safety Report 21825032 (Version 2)
Quarter: 2023Q1

REPORT INFORMATION
  Report Type: Spontaneous
  Country: US (occurrence: US)
  Receive Date: 20230105
  Receipt Date: 20230118
  Transmission Date: 20230418
  Serious: Yes (Other)
  Sender: FDA-Public Use
  Company Number: US-TEVA-2022-US-2841362

PATIENT
  Age: 5 Decade
  Sex: Female

DRUGS (8)
  1. PREDNISONE [Suspect]
     Active Substance: PREDNISONE
     Indication: Colitis ulcerative
     Dosage: 1 MG/KG   TAPER AT 9 WEEKS.
     Route: 065
  2. PREDNISONE [Suspect]
     Active Substance: PREDNISONE
     Dosage: THEN GIVEN AT 2MG/KG AND FINALLY TAPERED OFF
     Route: 065
  3. MESALAMINE [Suspect]
     Active Substance: MESALAMINE
     Indication: Colitis ulcerative
     Route: 065
  4. MESALAMINE [Suspect]
     Active Substance: MESALAMINE
     Dosage: 4 GRAM DAILY; ONCE A DAY
     Route: 054
  5. MESALAMINE [Suspect]
     Active Substance: MESALAMINE
     Dosage: 4.8 GRAM DAILY; HIGH DOSE, ONCE A DAY
     Route: 048
  6. VEDOLIZUMAB [Suspect]
     Active Substance: VEDOLIZUMAB
     Indication: Colitis ulcerative
     Dosage: 3 DOSES
     Route: 065
  7. USTEKINUMAB [Suspect]
     Active Substance: USTEKINUMAB
     Indication: Colitis ulcerative
     Route: 042
  8. UCERIS [Concomitant]
     Active Substance: BUDESONIDE
     Indication: Colitis ulcerative
     Dosage: SCHEDULED TO RECEIVE 8 WEEKS TREATMENT
     Route: 065

REACTIONS (2)
  - Warm autoimmune haemolytic anaemia [Recovered/Resolved]
  - Drug ineffective [Unknown]
